FAERS Safety Report 4301535-2 (Version None)
Quarter: 2004Q1

REPORT INFORMATION
  Report Type: 
  Country: None (occurrence: None)
  Receive Date: 20040219
  Receipt Date: 20040212
  Transmission Date: 20041129
  Serious: Yes (Hospitalization)
  Sender: FDA-Public Use
  Company Number: US-JNJFOC-20040100895

PATIENT
  Age: 21 Year
  Sex: Male

DRUGS (3)
  1. PROPULSID [Suspect]
     Indication: OESOPHAGEAL DISORDER
     Dosage: 10 MG, 4 IN 24 HOUR, ORAL
     Route: 048
     Dates: start: 19930101, end: 20000101
  2. PREVACID [Concomitant]
  3. AMITRIPTYLINE HCL [Concomitant]

REACTIONS (11)
  - BLOOD MAGNESIUM DECREASED [None]
  - BLOOD POTASSIUM DECREASED [None]
  - BRADYCARDIA [None]
  - CARDIAC ARREST [None]
  - CIRCULATORY COLLAPSE [None]
  - HEART RATE IRREGULAR [None]
  - IATROGENIC INJURY [None]
  - MONOPLEGIA [None]
  - PNEUMOTHORAX [None]
  - POST PROCEDURAL COMPLICATION [None]
  - PROCEDURAL COMPLICATION [None]
